FAERS Safety Report 13008083 (Version 1)
Quarter: 2016Q4

REPORT INFORMATION
  Report Type: Spontaneous
  Country: US (occurrence: US)
  Receive Date: 20161208
  Receipt Date: 20161208
  Transmission Date: 20170207
  Serious: No
  Sender: FDA-Public Use
  Company Number: US-BIOGEN-2016BI00324578

PATIENT
  Sex: Female

DRUGS (1)
  1. AVONEX [Suspect]
     Active Substance: INTERFERON BETA-1A
     Indication: MULTIPLE SCLEROSIS
     Route: 065
     Dates: start: 19980701

REACTIONS (6)
  - Chills [Recovered/Resolved]
  - Muscle tightness [Recovered/Resolved]
  - Influenza like illness [Recovered/Resolved]
  - Procedural anxiety [Unknown]
  - Liquid product physical issue [Unknown]
  - Fear of injection [Unknown]
